FAERS Safety Report 8926044 (Version 2)
Quarter: 2013Q1

REPORT INFORMATION
  Report Type: Spontaneous
  Country: US (occurrence: US)
  Receive Date: 20121126
  Receipt Date: 20130118
  Transmission Date: 20140127
  Serious: Yes (Other)
  Sender: FDA-Public Use
  Company Number: US-JNJFOC-20121110225

PATIENT
  Sex: Male
  Weight: 68.04 kg

DRUGS (2)
  1. REMICADE [Suspect]
     Indication: COLITIS ULCERATIVE
     Route: 042
     Dates: start: 20120831
  2. ALL OTHER THERAPEUTIC PRODUCTS [Concomitant]
     Route: 065

REACTIONS (2)
  - Rectal discharge [Not Recovered/Not Resolved]
  - Proctalgia [Not Recovered/Not Resolved]
